FAERS Safety Report 7467014-9 (Version None)
Quarter: 2011Q2

REPORT INFORMATION
  Report Type: 
  Country: None (occurrence: None)
  Receive Date: 20110509
  Receipt Date: 20101011
  Transmission Date: 20111010
  Serious: No
  Sender: FDA-Public Use
  Company Number: US-ALEXION-A201001284

PATIENT
  Sex: Male

DRUGS (10)
  1. SOLIRIS [Suspect]
     Indication: PAROXYSMAL NOCTURNAL HAEMOGLOBINURIA
     Dosage: 600 MG, QW X 4 WEEKS
     Route: 042
     Dates: start: 20070621, end: 20070701
  2. IRON [Concomitant]
     Dosage: UNK
     Route: 048
  3. OMEPRAZOLE [Concomitant]
     Indication: REFLUX OESOPHAGITIS
     Dosage: 20 MG, QD
     Route: 048
  4. PRAVASTATIN [Suspect]
     Dosage: 20 MG, QD
     Dates: start: 20100901
  5. LISINOPRIL [Concomitant]
     Indication: BLOOD PRESSURE
     Dosage: 50 MG, QD
     Route: 048
  6. COUMADIN [Concomitant]
     Indication: PROPHYLAXIS
     Dosage: UNK
     Route: 048
  7. FOLIC ACID [Concomitant]
     Indication: PAROXYSMAL NOCTURNAL HAEMOGLOBINURIA
     Dosage: UNK
     Route: 048
  8. TYLENOL W/ CODEINE [Concomitant]
     Dosage: UNK
     Route: 048
  9. SOLIRIS [Suspect]
     Dosage: 900 MG, Q2W
     Route: 042
     Dates: start: 20070719
  10. ASPIRIN [Concomitant]
     Dosage: 81 MG, QD
     Route: 048

REACTIONS (5)
  - NAUSEA [None]
  - NASOPHARYNGITIS [None]
  - COUGH [None]
  - CHEST PAIN [None]
  - ARTHRALGIA [None]
